FAERS Safety Report 20327501 (Version 1)
Quarter: 2022Q1

REPORT INFORMATION
  Report Type: Spontaneous
  Country: US (occurrence: None)
  Receive Date: 20220111
  Receipt Date: 20220111
  Transmission Date: 20220424
  Serious: Yes (Death)
  Sender: FDA-Public Use
  Company Number: None

PATIENT
  Sex: Male

DRUGS (1)
  1. PROVENGE [Suspect]
     Active Substance: SIPULEUCEL-T
     Indication: Prostate cancer metastatic
     Dosage: OTHER FREQUENCY : 3 TIMES OVER 6 WKS;?
     Route: 042
     Dates: start: 20210228, end: 20210430

REACTIONS (10)
  - Dizziness [None]
  - Asthenia [None]
  - Radiation injury [None]
  - Abdominal distension [None]
  - Abdominal pain [None]
  - Decreased appetite [None]
  - Nausea [None]
  - Vomiting [None]
  - Oedema [None]
  - Metastases to liver [None]
